FAERS Safety Report 6997172-1 (Version None)
Quarter: 2010Q3

REPORT INFORMATION
  Report Type: 
  Country: None (occurrence: None)
  Receive Date: 20100918
  Receipt Date: 20090917
  Transmission Date: 20110219
  Serious: No
  Sender: FDA-Public Use
  Company Number: US-WYE-H11062609

PATIENT
  Sex: Female
  Weight: 68.1 kg

DRUGS (3)
  1. PRISTIQ [Suspect]
     Indication: DEPRESSION
     Route: 048
     Dates: start: 20090101
  2. LAMOTRIGINE [Concomitant]
  3. SYNTHROID [Concomitant]

REACTIONS (4)
  - BACK PAIN [None]
  - MUSCULOSKELETAL PAIN [None]
  - NECK PAIN [None]
  - WEIGHT INCREASED [None]
